FAERS Safety Report 4501724-8 (Version None)
Quarter: 2004Q4

REPORT INFORMATION
  Report Type: 
  Country: None (occurrence: None)
  Receive Date: 20040927
  Receipt Date: 20040820
  Transmission Date: 20050328
  Serious: Yes (Other)
  Sender: FDA-Public Use
  Company Number: USA040772120

PATIENT
  Age: 43 Year
  Sex: Male
  Weight: 120 kg

DRUGS (12)
  1. SYMBYAX [Suspect]
     Indication: SOMNOLENCE
     Dates: start: 20040401
  2. ZYPREXA [Suspect]
     Dosage: 10 MG/3 DAY
     Dates: start: 19960101
  3. PROZAC [Suspect]
  4. STRATTERA [Suspect]
     Indication: ATTENTION DEFICIT/HYPERACTIVITY DISORDER
     Dosage: 60 MG/L IN THE MORNING
  5. GEODON [Concomitant]
  6. SEROQUEL [Concomitant]
  7. ACTOS [Concomitant]
  8. DILTIAZEM [Concomitant]
  9. CLONIDINE [Concomitant]
  10. DIOVAN [Concomitant]
  11. PAXIL [Concomitant]
  12. METFORMIN [Concomitant]

REACTIONS (11)
  - AGGRESSION [None]
  - ASTHENIA [None]
  - DIABETES MELLITUS [None]
  - MAJOR DEPRESSION [None]
  - MOOD SWINGS [None]
  - NEGATIVISM [None]
  - OEDEMA [None]
  - PRESCRIBED OVERDOSE [None]
  - SUICIDAL IDEATION [None]
  - TREMOR [None]
  - WEIGHT INCREASED [None]
